FAERS Safety Report 21243284 (Version 1)
Quarter: 2022Q3

REPORT INFORMATION
  Report Type: Spontaneous
  Country: US (occurrence: US)
  Receive Date: 20220823
  Receipt Date: 20220823
  Transmission Date: 20221027
  Serious: Yes (Hospitalization)
  Sender: FDA-Public Use
  Company Number: US-PPDUS-2022ZX001004

PATIENT
  Age: 18 Year
  Sex: Male

DRUGS (1)
  1. FINTEPLA [Suspect]
     Active Substance: FENFLURAMINE
     Indication: Product used for unknown indication
     Route: 048
     Dates: start: 20220718, end: 20220808

REACTIONS (4)
  - Head injury [Unknown]
  - Fall [Unknown]
  - Adverse event [Unknown]
  - Sedation [Unknown]

NARRATIVE: CASE EVENT DATE: 20220803
